FAERS Safety Report 7931880-0 (Version None)
Quarter: 2011Q4

REPORT INFORMATION
  Report Type: 
  Country: None (occurrence: None)
  Receive Date: 20111121
  Receipt Date: 20111115
  Transmission Date: 20120403
  Serious: Yes (Other)
  Sender: FDA-Public Use
  Company Number: US-PFIZER INC-2011280796

PATIENT
  Sex: Male
  Weight: 88.435 kg

DRUGS (5)
  1. SIMVASTATIN [Concomitant]
     Dosage: UNK
  2. DETROL [Suspect]
     Indication: HYPERTONIC BLADDER
     Dosage: 4 MG, UNK
     Dates: end: 20111103
  3. TOVIAZ [Suspect]
     Indication: HYPERTONIC BLADDER
     Dosage: 8 MG, DAILY
     Dates: start: 20111104
  4. LISINOPRIL [Concomitant]
     Dosage: UNK
  5. METOPROLOL [Concomitant]
     Dosage: UNK

REACTIONS (4)
  - BLADDER CANCER [None]
  - VISION BLURRED [None]
  - PHARYNGEAL OEDEMA [None]
  - DYSPHONIA [None]
